FAERS Safety Report 24725848 (Version 2)
Quarter: 2024Q4

REPORT INFORMATION
  Report Type: Report from Study
  Country: US (occurrence: US)
  Receive Date: 20241212
  Receipt Date: 20241225
  Transmission Date: 20250115
  Serious: No
  Sender: ABBVIE
  Company Number: US-ABBVIE-6041498

PATIENT
  Age: 59 Year
  Sex: Female

DRUGS (1)
  1. MAVYRET [Suspect]
     Active Substance: GLECAPREVIR\PIBRENTASVIR
     Indication: Product used for unknown indication
     Route: 048
     Dates: start: 20241209

REACTIONS (2)
  - Liver injury [Unknown]
  - Hepatitis C [Unknown]

NARRATIVE: CASE EVENT DATE: 20241201
